FAERS Safety Report 5280222-0 (Version None)
Quarter: 2007Q1

REPORT INFORMATION
  Report Type: 
  Country: None (occurrence: None)
  Receive Date: 20070329
  Receipt Date: 20070322
  Transmission Date: 20070707
  Serious: Yes (Other)
  Sender: FDA-Public Use
  Company Number: GB-ROCHE-489907

PATIENT
  Age: 65 Year
  Sex: Female
  Weight: 83.4 kg

DRUGS (9)
  1. XENICAL [Suspect]
     Indication: OBESITY
     Route: 048
     Dates: start: 20060920, end: 20070312
  2. METFORMIN HCL [Concomitant]
     Route: 048
  3. SIMVASTATIN [Concomitant]
     Route: 048
  4. AMILORIDE HYDROCHLORIDE [Concomitant]
     Indication: DIURETIC EFFECT
     Route: 048
  5. ASPIRIN [Concomitant]
     Route: 048
  6. BENDROFLUMETHIAZIDE [Concomitant]
     Indication: DIURETIC EFFECT
     Route: 048
  7. DICLOFENAC SODIUM [Concomitant]
     Indication: ANTIINFLAMMATORY THERAPY
     Route: 048
  8. DOXAZOSIN MESYLATE [Concomitant]
     Indication: HYPERTENSION
     Route: 048
  9. IRBESARTAN [Concomitant]
     Indication: HYPERTENSION
     Route: 048

REACTIONS (5)
  - DIARRHOEA [None]
  - GASTRITIS [None]
  - HALLUCINATION [None]
  - MEMORY IMPAIRMENT [None]
  - MINERAL DEFICIENCY [None]
